FAERS Safety Report 4378947-4 (Version None)
Quarter: 2004Q2

REPORT INFORMATION
  Report Type: 
  Country: None (occurrence: None)
  Receive Date: 20040610
  Receipt Date: 20040528
  Transmission Date: 20050107
  Serious: Yes (Death)
  Sender: FDA-Public Use
  Company Number: 2004215952TN

PATIENT
  Age: 53 Year
  Sex: Female

DRUGS (4)
  1. CYCLOPHOSPHAMIDE [Suspect]
     Indication: NON-HODGKIN'S LYMPHOMA
  2. DOXORUBICIN HYDROCHLORIDE [Suspect]
     Indication: NON-HODGKIN'S LYMPHOMA
  3. VINCRISTINE [Suspect]
     Indication: NON-HODGKIN'S LYMPHOMA
  4. PREDNISONE [Concomitant]

REACTIONS (2)
  - SEPTIC SHOCK [None]
  - THERAPEUTIC RESPONSE DECREASED [None]
